FAERS Safety Report 24981372 (Version 1)
Quarter: 2025Q1

REPORT INFORMATION
  Report Type: Spontaneous
  Country: US (occurrence: None)
  Receive Date: 20250217
  Receipt Date: 20250217
  Transmission Date: 20250409
  Serious: Yes (Life-Threatening, Other)
  Sender: FDA-CTU
  Company Number: None

PATIENT
  Age: 70 Year
  Sex: Male
  Weight: 62 kg

DRUGS (4)
  1. FENTANYL CITRATE [Suspect]
     Active Substance: FENTANYL CITRATE
     Route: 042
     Dates: start: 20250213
  2. ondansetron 4mg/ml [Concomitant]
     Dates: start: 20250213
  3. pipercillin-tazobactam 3.375g [Concomitant]
     Dates: start: 20250213
  4. Vancomycin 1gram [Concomitant]
     Dates: start: 20250213

REACTIONS (2)
  - Unresponsive to stimuli [None]
  - Pulse absent [None]

NARRATIVE: CASE EVENT DATE: 20250213
